FAERS Safety Report 12235677 (Version 1)
Quarter: 2016Q2

REPORT INFORMATION
  Report Type: Spontaneous
  Country: US (occurrence: MX)
  Receive Date: 20160404
  Receipt Date: 20160404
  Transmission Date: 20160815
  Serious: Yes (Other)
  Sender: FDA-Public Use
  Company Number: US-009507513-1603USA012645

PATIENT
  Sex: Female

DRUGS (1)
  1. DIPROSPAN [Suspect]
     Active Substance: BETAMETHASONE DIPROPIONATE\BETAMETHASONE SODIUM PHOSPHATE
     Indication: NONINFECTIVE ENCEPHALITIS
     Dosage: UNK (WAS ADMINISTERED 2 TO 3 INJECTIONS)
     Route: 030

REACTIONS (8)
  - Blindness cortical [Unknown]
  - Amnesia [Unknown]
  - Paraplegia [Unknown]
  - Nervous system disorder [Unknown]
  - Cerebral ventricle dilatation [Unknown]
  - Central nervous system lesion [Unknown]
  - Cerebrovascular accident [Unknown]
  - Quadriplegia [Unknown]
